FAERS Safety Report 9972457 (Version 2)
Quarter: 2014Q2

REPORT INFORMATION
  Report Type: Spontaneous
  Country: IT (occurrence: None)
  Receive Date: 20140304
  Receipt Date: 20140603
  Transmission Date: 20141212
  Serious: Yes (Death, Hospitalization)
  Sender: FDA-Public Use
  Company Number: 2013IT001935

PATIENT
  Age: 82 Year
  Sex: Female
  Weight: 80 kg

DRUGS (3)
  1. PONATINIB (AP24534)TABLET [Suspect]
     Indication: ACUTE LYMPHOCYTIC LEUKAEMIA
     Route: 048
     Dates: start: 20130319, end: 20130630
  2. PREDNISONE (PREDNISONE ACETATE) [Concomitant]
  3. FUROSEMIDE (FUROSEMIDE) [Concomitant]

REACTIONS (3)
  - Septic shock [None]
  - Back pain [None]
  - Dyspnoea [None]
